FAERS Safety Report 23308797 (Version 1)
Quarter: 2023Q4

REPORT INFORMATION
  Report Type: Spontaneous
  Country: US (occurrence: None)
  Receive Date: 20231217
  Receipt Date: 20231217
  Transmission Date: 20240109
  Serious: No
  Sender: FDA-Public Use
  Company Number: None

PATIENT
  Age: 47 Year
  Sex: Female
  Weight: 78.3 kg

DRUGS (10)
  1. SEMAGLUTIDE [Suspect]
     Active Substance: SEMAGLUTIDE
     Indication: Weight decreased
     Dates: start: 20230904
  2. ATORVASTATIN [Suspect]
     Active Substance: ATORVASTATIN
  3. OMEPRAZOLE [Concomitant]
     Active Substance: OMEPRAZOLE
  4. MIRENA [Concomitant]
     Active Substance: LEVONORGESTREL
  5. ESCITALOPRAM [Concomitant]
     Active Substance: ESCITALOPRAM OXALATE
  6. CALCIUM [Concomitant]
  7. POTASSIUM [Concomitant]
     Active Substance: POTASSIUM
  8. MAGNESIUM [Concomitant]
     Active Substance: MAGNESIUM
  9. VITAMINS [Concomitant]
     Active Substance: VITAMINS
  10. NUTRAFOL [Concomitant]

REACTIONS (3)
  - Pain of skin [None]
  - Sensitive skin [None]
  - Influenza [None]

NARRATIVE: CASE EVENT DATE: 20231110
